FAERS Safety Report 18961011 (Version 1)
Quarter: 2021Q1

REPORT INFORMATION
  Report Type: Spontaneous
  Country: IT (occurrence: IT)
  Receive Date: 20210302
  Receipt Date: 20210302
  Transmission Date: 20210420
  Serious: Yes (Other)
  Sender: FDA-Public Use
  Company Number: IT-PURDUE-USA-2021-0224489

PATIENT
  Age: 45 Year
  Sex: Male

DRUGS (1)
  1. NON?PMN BUPRENORPHINE [Suspect]
     Active Substance: BUPRENORPHINE
     Indication: PRODUCT USED FOR UNKNOWN INDICATION
     Dosage: UNK (THREE TO FOUR TIMES A DAY)
     Route: 065

REACTIONS (4)
  - Peripheral swelling [Unknown]
  - Hepatitis C [Unknown]
  - Intentional product misuse [Unknown]
  - Rheumatoid factor increased [Unknown]
